FAERS Safety Report 6128345-8 (Version None)
Quarter: 2009Q1

REPORT INFORMATION
  Report Type: 
  Country: None (occurrence: None)
  Receive Date: 20090323
  Receipt Date: 20090318
  Transmission Date: 20090719
  Serious: Yes (Other)
  Sender: FDA-Public Use
  Company Number: B0564532A

PATIENT
  Age: 35 Year
  Sex: Female

DRUGS (2)
  1. CLENIL [Suspect]
     Indication: ASTHMA
     Dosage: 200MG TWICE PER DAY
     Route: 055
     Dates: start: 20081201, end: 20081201
  2. VENTOLIN [Concomitant]
     Indication: ASTHMA
     Route: 055

REACTIONS (4)
  - ABORTION SPONTANEOUS [None]
  - COUGH [None]
  - DRUG EXPOSURE DURING PREGNANCY [None]
  - THROAT IRRITATION [None]
